FAERS Safety Report 5520005-7 (Version None)
Quarter: 2007Q4

REPORT INFORMATION
  Report Type: 
  Country: None (occurrence: None)
  Receive Date: 20071116
  Receipt Date: 20071108
  Transmission Date: 20080405
  Serious: Yes (Hospitalization, Other)
  Sender: FDA-Public Use
  Company Number: US-ASTRAZENECA-2007UW02100

PATIENT
  Sex: Female

DRUGS (1)
  1. SEROQUEL [Suspect]
     Route: 048
     Dates: start: 20010101, end: 20060601

REACTIONS (4)
  - ASTHMA [None]
  - DIABETIC NEUROPATHY [None]
  - DYSPNOEA [None]
  - TYPE 2 DIABETES MELLITUS [None]
